FAERS Safety Report 11267484 (Version 3)
Quarter: 2016Q1

REPORT INFORMATION
  Report Type: Report from Study
  Country: DE (occurrence: DE)
  Receive Date: 20150713
  Receipt Date: 20160128
  Transmission Date: 20160525
  Serious: Yes (Hospitalization)
  Sender: FDA-Public Use
  Company Number: DE-ROCHE-1604738

PATIENT
  Age: 50 Year
  Sex: Female
  Weight: 51 kg

DRUGS (7)
  1. PACLITAXEL. [Suspect]
     Active Substance: PACLITAXEL
     Indication: HER-2 POSITIVE BREAST CANCER
     Dosage: LAST DOSE PRIOR TO EVENT: 25/JUN/2015
     Route: 042
     Dates: start: 20150312, end: 20150707
  2. DOXORUBICIN HYDROCHLORIDE. [Suspect]
     Active Substance: DOXORUBICIN HYDROCHLORIDE
     Indication: HER-2 POSITIVE BREAST CANCER
     Dosage: LAST DOSE PRIOR TO EVENT: 25/JUN/2015
     Route: 042
     Dates: start: 20150312, end: 20150707
  3. AMLODIPIN [Concomitant]
     Active Substance: AMLODIPINE BESYLATE
     Route: 065
     Dates: end: 200610
  4. TRASTUZUMAB [Suspect]
     Active Substance: TRASTUZUMAB
     Indication: HER-2 POSITIVE BREAST CANCER
     Dosage: LAST DOSE PRIOR TO EVENT: 25/JUN/2015
     Route: 042
     Dates: start: 20150312
  5. PERTUZUMAB [Suspect]
     Active Substance: PERTUZUMAB
     Indication: HER-2 POSITIVE BREAST CANCER
     Dosage: LAST DOSE PRIOR TO EVENT: 25/JUN/2015
     Route: 042
     Dates: start: 20150312
  6. PERTUZUMAB [Suspect]
     Active Substance: PERTUZUMAB
     Route: 042
     Dates: start: 20150313, end: 20150603
  7. DOXORUBICIN HYDROCHLORIDE. [Suspect]
     Active Substance: DOXORUBICIN HYDROCHLORIDE
     Dosage: LAST DOSE PRIOR TO SAE 26/JUN/2015
     Route: 042
     Dates: start: 20150313, end: 20150605

REACTIONS (3)
  - Pneumonitis [Not Recovered/Not Resolved]
  - Vertigo [Recovered/Resolved]
  - Pyrexia [Recovered/Resolved]

NARRATIVE: CASE EVENT DATE: 20150606
